FAERS Safety Report 4292594-4 (Version None)
Quarter: 2004Q1

REPORT INFORMATION
  Report Type: 
  Country: None (occurrence: None)
  Receive Date: 20040211
  Receipt Date: 20040211
  Transmission Date: 20041129
  Serious: Yes (Hospitalization)
  Sender: FDA-Public Use
  Company Number: None

PATIENT
  Sex: Male
  Weight: 72.5755 kg

DRUGS (9)
  1. GATIFLOXACIN 400 MG BRISTOL-MYERS-SQUIBB [Suspect]
     Indication: PNEUMONIA
     Dosage: 400 MG EVERY DAY ORAL
     Route: 048
     Dates: start: 20040121, end: 20040204
  2. ADVAIR DISKUS 100/50 [Concomitant]
  3. ATROVENT [Concomitant]
  4. ALBUTEROL [Concomitant]
  5. COMBIVENT [Concomitant]
  6. PREDNISONE [Concomitant]
  7. CIMETIDINE HCL [Concomitant]
  8. TRAZODONE HCL [Concomitant]
  9. FELODIPINE SA [Concomitant]

REACTIONS (2)
  - ABDOMINAL PAIN [None]
  - DIARRHOEA [None]
